FAERS Safety Report 6273108-6 (Version None)
Quarter: 2009Q3

REPORT INFORMATION
  Report Type: 
  Country: None (occurrence: None)
  Receive Date: 20090715
  Receipt Date: 20090715
  Transmission Date: 20100115
  Serious: Yes (Hospitalization)
  Sender: FDA-Public Use
  Company Number: None

PATIENT
  Age: 38 Year
  Sex: Female
  Weight: 72.5755 kg

DRUGS (2)
  1. HEPARIN SODIUM [Suspect]
     Indication: THROMBOSIS PROPHYLAXIS
     Dosage: IV DRIP
     Route: 041
     Dates: start: 20090617, end: 20090621
  2. HEPARIN [Suspect]
     Indication: THROMBOSIS PROPHYLAXIS
     Dosage: 7500 UNITS Q8H TO Q12H SQ
     Dates: start: 20090621, end: 20090706

REACTIONS (1)
  - HEPARIN-INDUCED THROMBOCYTOPENIA [None]
